FAERS Safety Report 24305671 (Version 1)
Quarter: 2024Q3

REPORT INFORMATION
  Report Type: Report from Study
  Country: US (occurrence: US)
  Receive Date: 20240911
  Receipt Date: 20240911
  Transmission Date: 20241017
  Serious: Yes (Hospitalization)
  Sender: ABBVIE
  Company Number: US-ABBVIE-5898348

PATIENT
  Age: 38 Year
  Sex: Male

DRUGS (1)
  1. CREON [Suspect]
     Active Substance: PANCRELIPASE AMYLASE\PANCRELIPASE LIPASE\PANCRELIPASE PROTEASE
     Indication: Pancreatitis
     Dosage: 8 PILLS OF CREON PER DAY PER DAY TWO CAPSULE BEFORE BREAKFAST, LUNCH, DINNER AND SNACKS
     Route: 048
     Dates: start: 2014, end: 20240826

REACTIONS (7)
  - Pancreatitis relapsing [Recovering/Resolving]
  - Amylase increased [Recovering/Resolving]
  - Hepatic steatosis [Not Recovered/Not Resolved]
  - Stress at work [Unknown]
  - Pancreatitis [Not Recovered/Not Resolved]
  - Lipase increased [Recovering/Resolving]
  - Abdominal pain upper [Recovering/Resolving]

NARRATIVE: CASE EVENT DATE: 20240801
